FAERS Safety Report 9779991 (Version 2)
Quarter: 2014Q1

REPORT INFORMATION
  Report Type: Spontaneous
  Country: FR (occurrence: FR)
  Receive Date: 20131223
  Receipt Date: 20140218
  Transmission Date: 20141002
  Serious: Yes (Hospitalization)
  Sender: FDA-Public Use
  Company Number: FR-LUNDBECK-DKLU1096192

PATIENT
  Age: 79 Year
  Sex: Female

DRUGS (7)
  1. ONFI [Suspect]
     Indication: EPILEPSY
     Route: 048
     Dates: start: 20131028, end: 20131114
  2. ONFI [Suspect]
     Route: 048
     Dates: start: 20131115, end: 20131120
  3. LAMICTAL [Suspect]
     Indication: EPILEPSY
     Route: 048
     Dates: start: 20131028, end: 20131114
  4. LAMICTAL [Suspect]
     Route: 048
     Dates: start: 20131115, end: 20131120
  5. LAMICTAL [Suspect]
     Route: 048
     Dates: start: 20131121, end: 20131128
  6. MODOPAR [Concomitant]
     Indication: PARKINSON^S DISEASE
  7. SIMVASTATIN [Concomitant]
     Indication: PRODUCT USED FOR UNKNOWN INDICATION

REACTIONS (2)
  - Urinary retention [Recovered/Resolved]
  - Confusional state [Recovered/Resolved]
